FAERS Safety Report 26184331 (Version 1)
Quarter: 2025Q4

REPORT INFORMATION
  Report Type: Spontaneous
  Country: EU (occurrence: EU)
  Receive Date: 20251222
  Receipt Date: 20251222
  Transmission Date: 20260117
  Serious: Yes (Life-Threatening, Other)
  Sender: AUROBINDO
  Company Number: EU-AFSSAPS-NC2025001966

PATIENT
  Age: 35 Year
  Sex: Male
  Weight: 139 kg

DRUGS (4)
  1. MIRTAZAPINE [Suspect]
     Active Substance: MIRTAZAPINE
     Indication: Product used for unknown indication
     Dosage: 210 MILLIGRAM, 1 TOTAL
     Route: 061
     Dates: start: 20251018, end: 20251018
  2. QUETIAPINE [Suspect]
     Active Substance: QUETIAPINE
     Indication: Product used for unknown indication
     Dosage: 2100 MILLIGRAM, 1 TOTAL
     Route: 061
     Dates: start: 20251018, end: 20251018
  3. SERTRALINE HYDROCHLORIDE [Suspect]
     Active Substance: SERTRALINE HYDROCHLORIDE
     Indication: Product used for unknown indication
     Dosage: 1400 MILLIGRAM, 1 TOTAL
     Route: 061
     Dates: start: 20251018, end: 20251018
  4. PRAMIPEXOLE [Suspect]
     Active Substance: PRAMIPEXOLE
     Indication: Product used for unknown indication
     Dosage: 22.05 MILLIGRAM, 1 TOTAL
     Route: 061
     Dates: start: 20251018, end: 20251018

REACTIONS (3)
  - Status epilepticus [Recovered/Resolved]
  - Poisoning deliberate [Recovered/Resolved]
  - Intentional overdose [Recovered/Resolved]

NARRATIVE: CASE EVENT DATE: 20251018
